FAERS Safety Report 7096540-X (Version None)
Quarter: 2010Q4

REPORT INFORMATION
  Report Type: 
  Country: None (occurrence: None)
  Receive Date: 20101111
  Receipt Date: 20101105
  Transmission Date: 20110411
  Serious: Yes (Hospitalization, Congenital Anomaly)
  Sender: FDA-Public Use
  Company Number: A0891494A

PATIENT
  Sex: Male

DRUGS (1)
  1. PAXIL [Suspect]

REACTIONS (7)
  - ATRIAL SEPTAL DEFECT [None]
  - CONGENITAL AORTIC STENOSIS [None]
  - CONGENITAL MITRAL VALVE STENOSIS [None]
  - DRUG EXPOSURE DURING PREGNANCY [None]
  - FAILURE TO THRIVE [None]
  - HYPOPLASTIC RIGHT HEART SYNDROME [None]
  - PULMONARY ARTERY STENOSIS [None]
